FAERS Safety Report 8436601-3 (Version None)
Quarter: 2012Q2

REPORT INFORMATION
  Report Type: 
  Country: None (occurrence: None)
  Receive Date: 20120614
  Receipt Date: 20120601
  Transmission Date: 20120825
  Serious: No
  Sender: FDA-Public Use
  Company Number: US-ASTRAZENECA-2011SE28542

PATIENT
  Age: 64 Year
  Sex: Female

DRUGS (2)
  1. ATACAND [Suspect]
     Route: 048
  2. ATACAND HCT [Suspect]
     Route: 048

REACTIONS (5)
  - GLAUCOMA [None]
  - GOUT [None]
  - ARTHRITIS [None]
  - CHONDROCALCINOSIS PYROPHOSPHATE [None]
  - HYPERTENSION [None]
